FAERS Safety Report 9769391 (Version 1)
Quarter: 2013Q4

REPORT INFORMATION
  Report Type: Spontaneous
  Country: TR (occurrence: TR)
  Receive Date: 20131218
  Receipt Date: 20131218
  Transmission Date: 20140711
  Serious: Yes (Hospitalization, Other)
  Sender: FDA-Public Use
  Company Number: TR-VERTEX PHARMACEUTICALS INC-2013-011864

PATIENT
  Age: 63 Year
  Sex: Female

DRUGS (6)
  1. INCIVO [Suspect]
     Indication: HEPATITIS C
     Dosage: 750 MG, TID
     Route: 048
     Dates: start: 201308
  2. PEGASYS [Suspect]
     Indication: HEPATITIS C
     Dosage: 135 ?G, QW
     Route: 058
     Dates: start: 201308
  3. RIBAVIRIN [Suspect]
     Indication: HEPATITIS C
     Dosage: 200 MG, QD
     Route: 048
     Dates: start: 201308
  4. DILTIZEM [Concomitant]
  5. PROCTOLOG [Concomitant]
  6. UREA [Concomitant]
     Route: 061

REACTIONS (3)
  - Gastrointestinal haemorrhage [Unknown]
  - Asthenia [Unknown]
  - Alopecia [Unknown]
